FAERS Safety Report 10363368 (Version 1)
Quarter: 2014Q1

REPORT INFORMATION
  Report Type: Spontaneous
  Country: US (occurrence: None)
  Receive Date: 20140306
  Receipt Date: 20140306
  Transmission Date: 20141002
  Serious: Yes (Other)
  Sender: FDA-Public Use
  Company Number: 163-21880-13020142

PATIENT
  Age: 89 Year
  Sex: Female
  Weight: 51.71 kg

DRUGS (6)
  1. REVLIMID(LENALIDOMIDE)(10 MILLIGRAM, CAPSULES) [Suspect]
     Indication: PLASMA CELL MYELOMA
     Route: 048
     Dates: start: 20111023
  2. DEXAMETHASONE(DEXAMETHASONE) (UNKNOWN) [Concomitant]
  3. ALPHAGAN P(BRIMONIDINE TARTRATE) [Concomitant]
  4. MILK OF MAGNESIA(MAGNESIUM HYDROXIDE)(UNKNOWN) [Concomitant]
  5. PRILOSEC(OMEPRAZOLE) (10 MILLIGRAM, CAPSULES) [Concomitant]
  6. VITAMIN B-L2(CYANOOOBALAMIN)(UNKNOWN) [Concomitant]

REACTIONS (3)
  - Swelling face [None]
  - Erythema [None]
  - Abdominal discomfort [None]
